FAERS Safety Report 9955802 (Version 2)
Quarter: 2014Q1

REPORT INFORMATION
  Report Type: Report from Study
  Country: US (occurrence: US)
  Receive Date: 20140304
  Receipt Date: 20140306
  Transmission Date: 20141002
  Serious: No
  Sender: FDA-Public Use
  Company Number: US-009507513-1402USA008520

PATIENT
  Age: 22 Year
  Sex: Female

DRUGS (1)
  1. NEXPLANON [Suspect]
     Dosage: INSERTION SITE: LEFT UPPER ARM
     Route: 059
     Dates: start: 20140214

REACTIONS (1)
  - Inappropriate schedule of drug administration [Unknown]
